FAERS Safety Report 13672565 (Version 1)
Quarter: 2017Q2

REPORT INFORMATION
  Report Type: Other
  Country: JP (occurrence: JP)
  Receive Date: 20170621
  Receipt Date: 20170621
  Transmission Date: 20170830
  Serious: Yes (Other)
  Sender: FDA-Public Use
  Company Number: JP-ACTELION-A-CH2017-155181

PATIENT
  Age: 4 Month

DRUGS (1)
  1. BRAZAVES [Suspect]
     Active Substance: MIGLUSTAT
     Indication: NIEMANN-PICK DISEASE
     Route: 048

REACTIONS (14)
  - Bradycardia [Unknown]
  - Tracheostomy [Unknown]
  - Concomitant disease aggravated [Recovering/Resolving]
  - Liver transplant [Unknown]
  - Cardiac arrest [Recovered/Resolved]
  - Laryngotracheal operation [Unknown]
  - Jaundice [Recovering/Resolving]
  - Cyanosis [Unknown]
  - Hepatic function abnormal [Recovering/Resolving]
  - Transfusion [Unknown]
  - Splenectomy [Unknown]
  - Liver transplant rejection [Unknown]
  - Gastrointestinal haemorrhage [Unknown]
  - Hypocoagulable state [Unknown]
